FAERS Safety Report 5288443-8 (Version None)
Quarter: 2007Q2

REPORT INFORMATION
  Report Type: 
  Country: None (occurrence: None)
  Receive Date: 20070405
  Receipt Date: 20070329
  Transmission Date: 20071010
  Serious: Yes (Hospitalization)
  Sender: FDA-Public Use
  Company Number: US-AMGEN-US194195

PATIENT
  Sex: Female
  Weight: 63 kg

DRUGS (11)
  1. PANITUMUMAB [Suspect]
     Indication: COLORECTAL CANCER
     Route: 042
     Dates: start: 20060328, end: 20060911
  2. AVASTIN [Suspect]
     Route: 042
  3. FLUOROURACIL [Suspect]
     Route: 042
  4. IRINOTECAN HCL [Suspect]
     Route: 042
  5. LEUCOVORIN CALCIUM [Suspect]
     Route: 042
  6. GLUCOPHAGE [Concomitant]
     Route: 048
     Dates: start: 20060919
  7. TIMOLOL MALEATE [Concomitant]
     Route: 047
     Dates: start: 20060919
  8. XALATAN [Concomitant]
     Route: 047
     Dates: start: 20060919
  9. INSULIN GLARGINE [Concomitant]
     Route: 065
     Dates: start: 20060919, end: 20061003
  10. COUMADIN [Concomitant]
     Route: 065
     Dates: start: 20060919
  11. REMERON [Concomitant]
     Route: 048
     Dates: start: 20060919

REACTIONS (2)
  - FUNGAL SKIN INFECTION [None]
  - MUCOSAL INFLAMMATION [None]
